FAERS Safety Report 24198336 (Version 3)
Quarter: 2024Q3

REPORT INFORMATION
  Report Type: Spontaneous
  Country: US (occurrence: US)
  Receive Date: 20240812
  Receipt Date: 20240903
  Transmission Date: 20241016
  Serious: No
  Sender: ASTELLAS
  Company Number: US-ASTELLAS-2024US020029

PATIENT
  Sex: Female

DRUGS (1)
  1. VEOZAH [Suspect]
     Active Substance: FEZOLINETANT
     Indication: Menopausal symptoms
     Dosage: UNK, UNKNOWN FREQ.
     Route: 048
     Dates: start: 202403

REACTIONS (2)
  - Increased appetite [Not Recovered/Not Resolved]
  - Food craving [Not Recovered/Not Resolved]
